FAERS Safety Report 6740828-6 (Version None)
Quarter: 2010Q2

REPORT INFORMATION
  Report Type: 
  Country: None (occurrence: None)
  Receive Date: 20100525
  Receipt Date: 20100525
  Transmission Date: 20101027
  Serious: Yes (Life-Threatening, Other)
  Sender: FDA-Public Use
  Company Number: None

PATIENT
  Age: 73 Year
  Sex: Male
  Weight: 81.6475 kg

DRUGS (2)
  1. BENICAR [Suspect]
     Indication: HYPERTENSION
     Dosage: ONE TABLET ONCE PER DAY PO
     Route: 048
     Dates: start: 20100511, end: 20100518
  2. METOPROLOL SUCCINATE [Suspect]
     Indication: HYPERTENSION
     Dosage: ONE TABLET ONCE A DAY PO
     Route: 048
     Dates: start: 20100511, end: 20100518

REACTIONS (6)
  - PRURITUS [None]
  - RASH ERYTHEMATOUS [None]
  - RASH PUSTULAR [None]
  - SCAB [None]
  - SWELLING [None]
  - WOUND SECRETION [None]
